FAERS Safety Report 25450173 (Version 4)
Quarter: 2025Q3

REPORT INFORMATION
  Report Type: Report from Study
  Country: GB (occurrence: GB)
  Receive Date: 20250618
  Receipt Date: 20250911
  Transmission Date: 20251020
  Serious: Yes (Hospitalization, Other)
  Sender: AMGEN
  Company Number: GB-Vifor (International) Inc.-VIT-2024-02705

PATIENT
  Age: 72 Year
  Sex: Male
  Weight: 95.2 kg

DRUGS (18)
  1. AVACOPAN [Suspect]
     Active Substance: AVACOPAN
     Indication: Anti-neutrophil cytoplasmic antibody positive vasculitis
     Dosage: TWICE DAILY (BD)
     Route: 048
     Dates: start: 20231212, end: 20240830
  2. CYCLOPHOSPHAMIDE [Concomitant]
     Active Substance: CYCLOPHOSPHAMIDE
     Indication: Anti-neutrophil cytoplasmic antibody positive vasculitis
     Dosage: COMPLETION OF PLANNED COURSE
     Route: 048
     Dates: start: 20231209, end: 20240307
  3. PREDNISOLONE [Concomitant]
     Active Substance: PREDNISOLONE
     Indication: Anti-neutrophil cytoplasmic antibody positive vasculitis
     Dosage: 75,MG,QD
     Route: 048
     Dates: start: 20231207, end: 20231210
  4. PREDNISOLONE [Concomitant]
     Active Substance: PREDNISOLONE
     Dosage: 50,MG,QD
     Route: 048
     Dates: start: 20231211, end: 20231228
  5. PREDNISOLONE [Concomitant]
     Active Substance: PREDNISOLONE
     Dosage: 40,MG,QD
     Route: 048
     Dates: start: 20231229, end: 20231231
  6. PREDNISOLONE [Concomitant]
     Active Substance: PREDNISOLONE
     Dosage: 30,MG,QD
     Route: 048
     Dates: start: 20240101, end: 20240103
  7. PREDNISOLONE [Concomitant]
     Active Substance: PREDNISOLONE
     Dosage: 20,MG,QD
     Route: 048
     Dates: start: 20240104, end: 20240106
  8. PREDNISOLONE [Concomitant]
     Active Substance: PREDNISOLONE
     Dosage: 10,MG,QD
     Route: 048
     Dates: start: 20240107, end: 20240109
  9. CALCIUM CARBONATE\CHOLECALCIFEROL [Concomitant]
     Active Substance: CALCIUM CARBONATE\CHOLECALCIFEROL
     Indication: Prophylaxis
     Dosage: TWICE DAILY (BD)
     Route: 048
     Dates: start: 20231208
  10. ALFACALCIDOL [Concomitant]
     Active Substance: ALFACALCIDOL
     Indication: Prophylaxis
     Dosage: DAILY (OD)
     Route: 048
     Dates: start: 20231221
  11. ANORO ELLIPTA [Concomitant]
     Active Substance: UMECLIDINIUM BROMIDE\VILANTEROL TRIFENATATE
     Indication: Cough
     Dosage: TWICE DAILY (BD); 2 PUFFS
     Route: 045
     Dates: start: 20231207
  12. OMEPRAZOLE [Concomitant]
     Active Substance: OMEPRAZOLE
     Indication: Gastrointestinal disorder prophylaxis
     Dosage: DAILY (OD)
     Route: 048
     Dates: start: 20231208
  13. OMEPRAZOLE [Concomitant]
     Active Substance: OMEPRAZOLE
     Indication: Gastrointestinal disorder
  14. COTRIMOXAZOLE [Concomitant]
     Active Substance: SULFAMETHOXAZOLE\TRIMETHOPRIM
     Indication: Infection prophylaxis
     Dosage: DAILY (OD). NO LONGER REQUIRED
     Route: 048
     Dates: start: 20231208, end: 20240410
  15. AZATHIOPRINE [Concomitant]
     Active Substance: AZATHIOPRINE
     Indication: Anti-neutrophil cytoplasmic antibody positive vasculitis
     Dosage: 175,MG,QD
     Route: 048
     Dates: start: 20240229, end: 20240726
  16. CARBOCYSTEINE [Concomitant]
     Active Substance: CARBOCYSTEINE
     Indication: Cough
     Dosage: 750,MG,TID
     Route: 048
     Dates: start: 20240207
  17. RITUXIMAB [Concomitant]
     Active Substance: RITUXIMAB
     Indication: Anti-neutrophil cytoplasmic antibody positive vasculitis
     Route: 040
     Dates: start: 20241023, end: 20241023
  18. RITUXIMAB [Concomitant]
     Active Substance: RITUXIMAB
     Route: 040
     Dates: start: 20241106, end: 20241106

REACTIONS (10)
  - Bicytopenia [Recovered/Resolved]
  - Nephrogenic anaemia [Not Recovered/Not Resolved]
  - Nephrogenic anaemia [Not Recovered/Not Resolved]
  - Chronic obstructive pulmonary disease [Recovered/Resolved]
  - Lower respiratory tract infection [Recovered/Resolved]
  - Hypertension [Not Recovered/Not Resolved]
  - Vitamin B complex deficiency [Not Recovered/Not Resolved]
  - Depressed mood [Not Recovered/Not Resolved]
  - Pruritus [Recovered/Resolved]
  - Prostatic specific antigen increased [Not Recovered/Not Resolved]

NARRATIVE: CASE EVENT DATE: 20231227
